FAERS Safety Report 16204323 (Version 4)
Quarter: 2019Q3

REPORT INFORMATION
  Report Type: Spontaneous
  Country: PT (occurrence: PT)
  Receive Date: 20190416
  Receipt Date: 20190801
  Transmission Date: 20191004
  Serious: Yes (Other)
  Sender: FDA-Public Use
  Company Number: PT-SA-2019SA098214

PATIENT
  Age: 79 Year
  Sex: Male

DRUGS (3)
  1. OMNIC [Suspect]
     Active Substance: TAMSULOSIN HYDROCHLORIDE
     Indication: BENIGN PROSTATIC HYPERPLASIA
     Dosage: 1 DF, QD (1 TABLET/DAY)
     Route: 048
  2. TAMSULOSIN HYDROCHLORIDE. [Suspect]
     Active Substance: TAMSULOSIN HYDROCHLORIDE
     Indication: BENIGN PROSTATIC HYPERPLASIA
     Dosage: UNK UNK, UNK
     Route: 065
  3. OMNIC [Suspect]
     Active Substance: TAMSULOSIN HYDROCHLORIDE
     Dosage: 1 DF, QD
     Route: 048

REACTIONS (3)
  - Erectile dysfunction [Not Recovered/Not Resolved]
  - Ejaculation disorder [Not Recovered/Not Resolved]
  - Drug ineffective [Unknown]
